FAERS Safety Report 4374117-4 (Version None)
Quarter: 2004Q2

REPORT INFORMATION
  Report Type: 
  Country: None (occurrence: None)
  Receive Date: 20040607
  Receipt Date: 20040527
  Transmission Date: 20050107
  Serious: Yes (Life-Threatening, Hospitalization, Other)
  Sender: FDA-Public Use
  Company Number: US-MERCK-0405USA02054

PATIENT
  Age: 55 Year
  Sex: Female
  Weight: 57 kg

DRUGS (5)
  1. ESTROGENS (UNSPECIFIED) [Concomitant]
     Route: 061
  2. INSULIN [Concomitant]
     Route: 065
  3. MAXALT [Suspect]
     Indication: MIGRAINE
     Route: 060
     Dates: start: 19980601, end: 20040424
  4. ZOLOFT [Suspect]
     Indication: MIGRAINE PROPHYLAXIS
     Route: 048
     Dates: start: 20020601, end: 20040424
  5. DIOVAN [Concomitant]
     Route: 065

REACTIONS (8)
  - APHASIA [None]
  - BLOOD PRESSURE INCREASED [None]
  - DRUG INTERACTION [None]
  - HYPERTHERMIA [None]
  - LOSS OF CONSCIOUSNESS [None]
  - MIGRAINE WITH AURA [None]
  - SEROTONIN SYNDROME [None]
  - VENTRICULAR TACHYCARDIA [None]
